FAERS Safety Report 5564572-6 (Version None)
Quarter: 2007Q4

REPORT INFORMATION
  Report Type: 
  Country: None (occurrence: None)
  Receive Date: 20071212
  Receipt Date: 20071203
  Transmission Date: 20080405
  Serious: Yes (Other)
  Sender: FDA-Public Use
  Company Number: 17933

PATIENT
  Age: 30 Year
  Sex: Male

DRUGS (7)
  1. BLEOMYCIN [Suspect]
     Indication: EWING'S SARCOMA
  2. METHOTREXATE [Suspect]
     Indication: EWING'S SARCOMA
  3. VINCRISTINE [Suspect]
     Indication: EWING'S SARCOMA
  4. CYCLOPHOSPHAMIDE [Suspect]
     Indication: EWING'S SARCOMA
  5. DOXORUBICIN HCL [Suspect]
     Indication: EWING'S SARCOMA
  6. DACTINOMYCIN [Suspect]
     Indication: EWING'S SARCOMA
  7. RADIATION THERAPY [Concomitant]

REACTIONS (1)
  - TESTIS CANCER [None]
